FAERS Safety Report 14374603 (Version 1)
Quarter: 2018Q1

REPORT INFORMATION
  Report Type: Spontaneous
  Country: FR (occurrence: FR)
  Receive Date: 20180111
  Receipt Date: 20180111
  Transmission Date: 20180509
  Serious: Yes (Other)
  Sender: FDA-Public Use
  Company Number: FR-MERCK KGAA-2039912

PATIENT
  Age: 75 Year
  Sex: Female

DRUGS (1)
  1. NOVOTHYROX [Suspect]
     Active Substance: LEVOTHYROXINE SODIUM
     Indication: POST PROCEDURAL HYPOTHYROIDISM
     Dates: start: 201704

REACTIONS (11)
  - Alopecia [Recovered/Resolved]
  - Muscle spasms [Recovered/Resolved]
  - Pain in extremity [Recovered/Resolved]
  - Amnesia [Recovered/Resolved]
  - Fatigue [Recovered/Resolved]
  - Headache [Recovered/Resolved]
  - Vertigo [None]
  - Balance disorder [None]
  - Depression [Recovered/Resolved]
  - Eye burns [Recovered/Resolved]
  - Decreased appetite [None]

NARRATIVE: CASE EVENT DATE: 2017
